FAERS Safety Report 8907193 (Version 1)
Quarter: 2012Q4

REPORT INFORMATION
  Report Type: 
  Country: US (occurrence: US)
  Receive Date: 20121114
  Receipt Date: 20121114
  Transmission Date: 20130627
  Serious: Yes (Hospitalization)
  Sender: FDA-Public Use
  Company Number: US-ASTRAZENECA-2012SE85827

PATIENT
  Age: 80 Year
  Sex: Male

DRUGS (4)
  1. SYMBICORT PMDI [Suspect]
     Dosage: 80/4.5
     Route: 055
  2. SYMBICORT PMDI [Suspect]
     Dosage: 160/4.5
     Route: 055
  3. AIR PRO [Concomitant]
     Indication: BRONCHITIS
  4. SPIRIVA [Concomitant]

REACTIONS (1)
  - Lung infection [Unknown]
